FAERS Safety Report 5043183-5 (Version None)
Quarter: 2006Q3

REPORT INFORMATION
  Report Type: 
  Country: None (occurrence: None)
  Receive Date: 20060703
  Receipt Date: 20060703
  Transmission Date: 20061208
  Serious: Yes (Other)
  Sender: FDA-Public Use
  Company Number: None

PATIENT
  Sex: Female
  Weight: 61.2356 kg

DRUGS (2)
  1. AMBIEN [Suspect]
     Indication: FATIGUE
     Dosage: 10 MG HS PO
     Route: 048
     Dates: start: 20060405, end: 20060626
  2. AMBIEN [Suspect]
     Indication: INSOMNIA
     Dosage: 10 MG HS PO
     Route: 048
     Dates: start: 20060405, end: 20060626

REACTIONS (1)
  - ABNORMAL BEHAVIOUR [None]
